FAERS Safety Report 9146164 (Version 1)
Quarter: 2013Q1

REPORT INFORMATION
  Report Type: Spontaneous
  Country: US (occurrence: None)
  Receive Date: 20130227
  Receipt Date: 20130227
  Transmission Date: 20140127
  Serious: No
  Sender: FDA-Public Use
  Company Number: None

PATIENT
  Sex: Male
  Weight: 71.67 kg

DRUGS (2)
  1. ATROVASTATIN [Suspect]
     Indication: HYPERLIPIDAEMIA
     Dosage: 20MG ONE DAILY PO
     Route: 048
     Dates: start: 20121101, end: 20130218
  2. ATROVASTATIN [Suspect]
     Indication: CORONARY ARTERY DISEASE
     Dosage: 20MG ONE DAILY PO
     Route: 048
     Dates: start: 20121101, end: 20130218

REACTIONS (3)
  - Arthralgia [None]
  - Lipids increased [None]
  - Product substitution issue [None]
